FAERS Safety Report 8845464 (Version 2)
Quarter: 2013Q1

REPORT INFORMATION
  Report Type: Spontaneous
  Country: US (occurrence: None)
  Receive Date: 20121014
  Receipt Date: 20121031
  Transmission Date: 20140127
  Serious: Yes (Hospitalization, Other)
  Sender: FDA-Public Use
  Company Number: 2012SP002986

PATIENT
  Age: 63 Year
  Sex: Male
  Weight: 101.6 kg

DRUGS (17)
  1. OXALIPLATIN [Suspect]
     Indication: PANCREATIC CARCINOMA
     Route: 042
     Dates: start: 20120801, end: 20120904
  2. FLUOROURACIL [Suspect]
     Route: 042
     Dates: start: 20120801, end: 20120904
  3. IRINOTECAN HCL [Suspect]
     Route: 042
     Dates: start: 20120801, end: 20120904
  4. FOLINIC ACID [Suspect]
     Route: 042
     Dates: start: 20120801, end: 20120904
  5. ASPIRIN [Concomitant]
  6. CRESTOR [Concomitant]
  7. LIDOCAINE [Concomitant]
  8. LORAZEPAM [Concomitant]
  9. MAGNESIUM OXIDE [Concomitant]
  10. NEUPOGEN [Concomitant]
  11. OMEPRAZOLE [Concomitant]
  12. OXYCODONE [Concomitant]
  13. PARACETAMOL [Concomitant]
  14. PLAVIX [Concomitant]
  15. PROCHLORPERAZINE [Concomitant]
  16. SPIRONOLACTONE [Concomitant]
  17. MULTIVITAMIN /00831701/ [Concomitant]

REACTIONS (7)
  - Febrile neutropenia [None]
  - Anaemia [None]
  - Lipase increased [None]
  - Amylase increased [None]
  - Hepatic enzyme increased [None]
  - Aspartate aminotransferase increased [None]
  - Alanine aminotransferase increased [None]
